FAERS Safety Report 5081775-8 (Version None)
Quarter: 2006Q3

REPORT INFORMATION
  Report Type: 
  Country: None (occurrence: None)
  Receive Date: 20060816
  Receipt Date: 20060711
  Transmission Date: 20061208
  Serious: Yes (Other)
  Sender: FDA-Public Use
  Company Number: CA-GLAXOSMITHKLINE-A0612082A

PATIENT
  Age: 44 Year
  Sex: Female
  Weight: 54.5 kg

DRUGS (2)
  1. VALTREX [Suspect]
     Indication: ANTIVIRAL PROPHYLAXIS
     Dosage: 500MG PER DAY
     Route: 048
  2. NO CONCURRENT MEDICATION [Concomitant]

REACTIONS (3)
  - BLEEDING TIME PROLONGED [None]
  - CONTUSION [None]
  - SKIN DISCOLOURATION [None]
